FAERS Safety Report 10594527 (Version 1)
Quarter: 2014Q4

REPORT INFORMATION
  Report Type: Spontaneous
  Country: JP (occurrence: JP)
  Receive Date: 20141120
  Receipt Date: 20141120
  Transmission Date: 20150529
  Serious: Yes (Death)
  Sender: FDA-Public Use
  Company Number: JP-ROCHE-1492773

PATIENT
  Age: 8 Decade
  Sex: Female

DRUGS (1)
  1. XELODA [Suspect]
     Active Substance: CAPECITABINE
     Indication: PRODUCT USED FOR UNKNOWN INDICATION
     Dosage: ONLY BY UNCERTAIN DOSAGE AND ONE COURSE
     Route: 048
     Dates: start: 20120118, end: 20120131

REACTIONS (2)
  - Prothrombin time ratio increased [Unknown]
  - Death [Fatal]
